FAERS Safety Report 5963338-2 (Version None)
Quarter: 2008Q4

REPORT INFORMATION
  Report Type: 
  Country: None (occurrence: None)
  Receive Date: 20081124
  Receipt Date: 20081119
  Transmission Date: 20090506
  Serious: Yes (Hospitalization)
  Sender: FDA-Public Use
  Company Number: A0757238A

PATIENT
  Age: 49 Year
  Sex: Female

DRUGS (13)
  1. AVANDIA [Suspect]
     Route: 048
     Dates: start: 19990801, end: 20070801
  2. RISPERDAL [Concomitant]
  3. PREMARIN [Concomitant]
  4. NEXIUM [Concomitant]
  5. ALLEGRA [Concomitant]
  6. VITAMIN B-12 [Concomitant]
  7. UNSPECIFIED MEDICATION [Concomitant]
  8. ALBUTEROL [Concomitant]
  9. ADVAIR HFA [Concomitant]
  10. XOPENEX [Concomitant]
  11. ATROVENT [Concomitant]
  12. PRINIVIL [Concomitant]
  13. TRAVATAN [Concomitant]

REACTIONS (6)
  - BLOOD GLUCOSE DECREASED [None]
  - CHEST PAIN [None]
  - DIZZINESS [None]
  - GLAUCOMA [None]
  - PAIN IN EXTREMITY [None]
  - WEIGHT INCREASED [None]
